FAERS Safety Report 9312651 (Version 1)
Quarter: 2013Q2

REPORT INFORMATION
  Report Type: Spontaneous
  Country: US (occurrence: US)
  Receive Date: 20130528
  Receipt Date: 20130528
  Transmission Date: 20140414
  Serious: Yes (Other)
  Sender: FDA-Public Use
  Company Number: US-BAYER-2013-063808

PATIENT
  Age: 76 Year
  Sex: Female
  Weight: 90.7 kg

DRUGS (7)
  1. PHILLIPS^ FIBER GOOD GUMMIES [Suspect]
     Dosage: 70 DF, ONCE
     Route: 048
     Dates: start: 20130514, end: 20130515
  2. BAYER GENUINE ASPIRIN ORIGINAL STRENGTH [Suspect]
     Dosage: UNK
  3. AMLODIPINE BESYLATE [Concomitant]
  4. TRAZODONE [Concomitant]
  5. DIAZEPAM [Concomitant]
  6. LOSARTAN POTASSIUM W/HYDROCHLOROTHIAZIDE [Concomitant]
  7. GLIPIZIDE [Concomitant]

REACTIONS (6)
  - Drug dependence [None]
  - Diarrhoea [Recovered/Resolved]
  - Incorrect dose administered [None]
  - Diarrhoea [Recovered/Resolved]
  - Asthenia [Recovered/Resolved]
  - Drug hypersensitivity [None]
